FAERS Safety Report 9776692 (Version 2)
Quarter: 2014Q1

REPORT INFORMATION
  Report Type: Report from Study
  Country: JP (occurrence: JP)
  Receive Date: 20131220
  Receipt Date: 20140115
  Transmission Date: 20141002
  Serious: Yes (Hospitalization, Other)
  Sender: FDA-Public Use
  Company Number: JP-TAKEDA-2013TJP003885

PATIENT
  Age: 88 Year
  Sex: Female
  Weight: 46 kg

DRUGS (7)
  1. ALOGLIPTIN [Suspect]
     Indication: TYPE 2 DIABETES MELLITUS
     Dosage: 25 MG, QD
     Route: 048
     Dates: start: 20121213
  2. WARFARIN [Concomitant]
     Dosage: UNK
     Route: 048
  3. ARICEPT [Concomitant]
     Dosage: UNK
     Route: 048
  4. MEVAN                              /00880402/ [Concomitant]
     Indication: DYSLIPIDAEMIA
     Dosage: UNK
     Route: 048
  5. ALDACTONE-A [Concomitant]
     Dosage: UNK
     Route: 048
  6. LASIX                              /00032601/ [Concomitant]
     Dosage: UNK
     Route: 048
  7. ALOSENN                            /00476901/ [Concomitant]
     Dosage: UNK
     Route: 048

REACTIONS (3)
  - Cerebral infarction [Recovered/Resolved with Sequelae]
  - Condition aggravated [Recovered/Resolved with Sequelae]
  - Pneumonia aspiration [Recovered/Resolved]
